FAERS Safety Report 9355243 (Version 1)
Quarter: 2013Q2

REPORT INFORMATION
  Report Type: Report from Study
  Country: AR (occurrence: AR)
  Receive Date: 20130619
  Receipt Date: 20130619
  Transmission Date: 20140414
  Serious: Yes (Other)
  Sender: FDA-Public Use
  Company Number: PHHY2013AR062003

PATIENT
  Sex: Male

DRUGS (3)
  1. LAPENAX [Suspect]
     Indication: SCHIZOPHRENIA
     Dosage: 100 MG, TID
     Route: 048
  2. VALCOTE [Concomitant]
     Dosage: UNK UKN, UNK
     Route: 065
  3. LITHIUM [Concomitant]
     Dosage: UNK UKN, UNK
     Route: 065

REACTIONS (3)
  - H1N1 influenza [Not Recovered/Not Resolved]
  - Pyrexia [Not Recovered/Not Resolved]
  - Pain [Not Recovered/Not Resolved]
